FAERS Safety Report 5431741-5 (Version None)
Quarter: 2007Q3

REPORT INFORMATION
  Report Type: 
  Country: None (occurrence: None)
  Receive Date: 20070830
  Receipt Date: 20070817
  Transmission Date: 20080115
  Serious: Yes (Death, Other)
  Sender: FDA-Public Use
  Company Number: GB-PFIZER INC-9404623

PATIENT
  Age: 84 Year
  Sex: Female

DRUGS (4)
  1. SERTRALINE [Suspect]
     Indication: DEPRESSION
     Route: 048
     Dates: start: 19930219, end: 19930414
  2. AMITRIPTYLINE HCL [Concomitant]
     Route: 048
  3. HALOPERIDOL [Concomitant]
  4. SINEMET [Concomitant]
     Route: 048

REACTIONS (2)
  - CHOLESTASIS [None]
  - HEPATIC NECROSIS [None]
